FAERS Safety Report 5322772-4 (Version None)
Quarter: 2007Q2

REPORT INFORMATION
  Report Type: 
  Country: None (occurrence: None)
  Receive Date: 20070511
  Receipt Date: 20070501
  Transmission Date: 20071010
  Serious: Yes (Other)
  Sender: FDA-Public Use
  Company Number: US-PFIZER INC-2007022403

PATIENT
  Sex: Male

DRUGS (5)
  1. CHANTIX [Suspect]
     Indication: EX-SMOKER
     Dates: start: 20070101, end: 20070316
  2. ALTACE [Concomitant]
  3. LIPITOR [Concomitant]
  4. ACETYLSALICYLIC ACID SRT [Concomitant]
     Dosage: TEXT:81 MILLIGRAMS
  5. PLAVIX [Concomitant]

REACTIONS (2)
  - RASH [None]
  - SKIN LESION [None]
